FAERS Safety Report 5842649-5 (Version None)
Quarter: 2008Q3

REPORT INFORMATION
  Report Type: 
  Country: None (occurrence: None)
  Receive Date: 20080808
  Receipt Date: 20080725
  Transmission Date: 20090109
  Serious: Yes (Other)
  Sender: FDA-Public Use
  Company Number: 031411

PATIENT
  Age: 25 Year
  Sex: Female

DRUGS (3)
  1. CLARAVIS [Suspect]
     Dosage: 20 MG, IN AM, ORAL, 40 MG, IN PM, ORAL
     Route: 048
     Dates: start: 20080709, end: 20080720
  2. CLARAVIS [Suspect]
     Dosage: 20 MG, IN AM, ORAL, 40 MG, IN PM, ORAL
     Route: 048
     Dates: start: 20080709, end: 20080720
  3. SEASONABLE (LEVONORGESTREL, ETHINYLESTRADIOL) TABLET [Concomitant]

REACTIONS (2)
  - DRUG EXPOSURE DURING PREGNANCY [None]
  - UNINTENDED PREGNANCY [None]
